FAERS Safety Report 5515870-3 (Version None)
Quarter: 2007Q4

REPORT INFORMATION
  Report Type: 
  Country: None (occurrence: None)
  Receive Date: 20071109
  Receipt Date: 20071102
  Transmission Date: 20080405
  Serious: Yes (Hospitalization)
  Sender: FDA-Public Use
  Company Number: 2007-04937

PATIENT
  Age: 28 Year
  Sex: Female

DRUGS (2)
  1. TRELSTAR [Suspect]
     Indication: ENDOMETRIOSIS
     Dosage: 11.25 MG, Q 3 MONTHS, INTRAMUSCULAR
     Route: 030
     Dates: start: 20010101, end: 20070713
  2. YASMIN [Concomitant]

REACTIONS (4)
  - CONDITION AGGRAVATED [None]
  - DRUG INEFFECTIVE [None]
  - ENDOMETRIOSIS [None]
  - METRORRHAGIA [None]
